FAERS Safety Report 24999686 (Version 3)
Quarter: 2025Q1

REPORT INFORMATION
  Report Type: Spontaneous
  Country: US (occurrence: US)
  Receive Date: 20250222
  Receipt Date: 20250317
  Transmission Date: 20250408
  Serious: Yes (Disabling)
  Sender: SANOFI AVENTIS
  Company Number: US-SA-SAC20231204000443

PATIENT
  Age: 16 Year
  Sex: Female
  Weight: 65.8 kg

DRUGS (20)
  1. NEXVIAZYME [Suspect]
     Active Substance: AVALGLUCOSIDASE ALFA-NGPT
     Indication: Glycogen storage disease type II
     Dosage: 20 MG/KG (1100 MG-1300 MG), QOW
     Route: 041
     Dates: start: 20231215, end: 20250214
  2. LYRICA [Suspect]
     Active Substance: PREGABALIN
     Indication: Pain
  3. LYRICA [Suspect]
     Active Substance: PREGABALIN
     Indication: Allodynia
  4. LYRICA [Suspect]
     Active Substance: PREGABALIN
     Indication: Hyperaesthesia
  5. ABILIFY [Concomitant]
     Active Substance: ARIPIPRAZOLE
     Dosage: 4 MG, QD
     Route: 048
  6. PRISTIQ EXTENDED-RELEASE [Concomitant]
     Active Substance: DESVENLAFAXINE SUCCINATE
     Dosage: 1 DF, QD
     Route: 048
  7. ETHINYL ESTRADIOL\NORGESTIMATE [Concomitant]
     Active Substance: ETHINYL ESTRADIOL\NORGESTIMATE
     Dosage: 1 DF, QD
     Route: 048
  8. FAMOTIDINE [Concomitant]
     Active Substance: FAMOTIDINE
     Indication: Premedication
     Dosage: 1 DF, HS
  9. GABAPENTIN [Concomitant]
     Active Substance: GABAPENTIN
     Dosage: 100 MG, HS
  10. GABAPENTIN [Concomitant]
     Active Substance: GABAPENTIN
     Dosage: 100 MG, BID
  11. XOPENEX HFA [Concomitant]
     Active Substance: LEVALBUTEROL TARTRATE
     Indication: Dyspnoea
  12. EMLA [Concomitant]
     Active Substance: LIDOCAINE\PRILOCAINE
     Route: 061
  13. LITHIUM [Concomitant]
     Active Substance: LITHIUM
     Route: 048
  14. CONCERTA [Concomitant]
     Active Substance: METHYLPHENIDATE HYDROCHLORIDE
     Dosage: 54 MG, QD
     Route: 048
  15. MINOCYCLINE [Concomitant]
     Active Substance: MINOCYCLINE HYDROCHLORIDE
     Dosage: 1 DF, QD
     Route: 048
  16. ONDANSETRON [Concomitant]
     Active Substance: ONDANSETRON
     Indication: Nausea
     Route: 048
  17. ONDANSETRON [Concomitant]
     Active Substance: ONDANSETRON
     Indication: Vomiting
  18. ONDANSETRON [Concomitant]
     Active Substance: ONDANSETRON
     Indication: Premedication
  19. HEPARIN SODIUM [Concomitant]
     Active Substance: HEPARIN SODIUM
     Route: 042
  20. IBUPROFEN [Concomitant]
     Active Substance: IBUPROFEN
     Indication: Premedication
     Route: 048
     Dates: start: 202009, end: 20231201

REACTIONS (16)
  - Myalgia [Not Recovered/Not Resolved]
  - Pain [Not Recovered/Not Resolved]
  - Drug specific antibody present [Unknown]
  - Hypersomnia [Unknown]
  - Muscle spasms [Not Recovered/Not Resolved]
  - Depression [Recovering/Resolving]
  - Glycogen storage disease type II [Not Recovered/Not Resolved]
  - Condition aggravated [Not Recovered/Not Resolved]
  - Arthralgia [Not Recovered/Not Resolved]
  - Fatigue [Not Recovered/Not Resolved]
  - Muscle tightness [Not Recovered/Not Resolved]
  - Mental disorder [Not Recovered/Not Resolved]
  - Allodynia [Not Recovered/Not Resolved]
  - Back pain [Not Recovered/Not Resolved]
  - Hyperaesthesia [Not Recovered/Not Resolved]
  - Therapeutic response shortened [Unknown]

NARRATIVE: CASE EVENT DATE: 20231201
